FAERS Safety Report 8431221-9 (Version None)
Quarter: 2012Q2

REPORT INFORMATION
  Report Type: 
  Country: None (occurrence: None)
  Receive Date: 20120612
  Receipt Date: 20120610
  Transmission Date: 20120825
  Serious: Yes (Death, Hospitalization, Other)
  Sender: FDA-Public Use
  Company Number: GR-AMGEN-GRCSP2011046496

PATIENT
  Age: 83 Year
  Sex: Female

DRUGS (1)
  1. PROLIA [Suspect]
     Indication: OSTEOPOROSIS
     Dosage: UNK
     Dates: start: 20110801

REACTIONS (7)
  - FEELING HOT [None]
  - HYPOAESTHESIA [None]
  - INSOMNIA [None]
  - DIZZINESS [None]
  - DEATH [None]
  - BURNING SENSATION [None]
  - PRURITUS [None]
